FAERS Safety Report 21402438 (Version 1)
Quarter: 2022Q4

REPORT INFORMATION
  Report Type: Spontaneous
  Country: NL (occurrence: NL)
  Receive Date: 20221003
  Receipt Date: 20221003
  Transmission Date: 20230112
  Serious: Yes (Other)
  Sender: FDA-Public Use
  Company Number: NL-TEVA-2022-NL-2079840

PATIENT
  Age: 51 Year
  Sex: Male

DRUGS (1)
  1. PREGABALIN [Suspect]
     Active Substance: PREGABALIN
     Indication: Product used for unknown indication
     Dosage: 9.1 MG KG-1
     Route: 048

REACTIONS (3)
  - Depressed level of consciousness [Unknown]
  - Overdose [Unknown]
  - Toxicity to various agents [Unknown]
